FAERS Safety Report 6854715-6 (Version None)
Quarter: 2010Q3

REPORT INFORMATION
  Report Type: 
  Country: None (occurrence: None)
  Receive Date: 20100717
  Receipt Date: 20080108
  Transmission Date: 20110219
  Serious: No
  Sender: FDA-Public Use
  Company Number: US-PFIZER INC-2008003975

PATIENT
  Sex: Male
  Weight: 84.09 kg

DRUGS (5)
  1. CHANTIX [Suspect]
     Indication: SMOKING CESSATION THERAPY
     Route: 048
     Dates: start: 20071201, end: 20071201
  2. DIAZEPAM [Concomitant]
     Indication: RESTLESS LEGS SYNDROME
  3. EFFEXOR [Concomitant]
  4. TRICOR [Concomitant]
  5. PRAVASTATIN [Concomitant]

REACTIONS (2)
  - ABDOMINAL DISCOMFORT [None]
  - ABNORMAL DREAMS [None]
